FAERS Safety Report 10151048 (Version 1)
Quarter: 2014Q2

REPORT INFORMATION
  Report Type: Spontaneous
  Country: US (occurrence: US)
  Receive Date: 20140502
  Receipt Date: 20140502
  Transmission Date: 20141212
  Serious: Yes (Other)
  Sender: FDA-Public Use
  Company Number: US-ASTRAZENECA-2014SE23442

PATIENT
  Age: 46 Year
  Sex: Male
  Weight: 83.9 kg

DRUGS (3)
  1. PRILOSEC OTC [Suspect]
     Indication: DYSPEPSIA
     Route: 048
     Dates: start: 1990
  2. PRILOSEC OTC [Suspect]
     Indication: DYSPEPSIA
     Dosage: 2-3 TIMES A WEEK AS NEEDED
     Route: 048
  3. OTHER MEDICATIONS [Concomitant]

REACTIONS (4)
  - Hepatic failure [Not Recovered/Not Resolved]
  - Hyperchlorhydria [Unknown]
  - Drug screen positive [Not Recovered/Not Resolved]
  - Intentional product misuse [Unknown]
